FAERS Safety Report 8337118-7 (Version None)
Quarter: 2012Q2

REPORT INFORMATION
  Report Type: 
  Country: None (occurrence: None)
  Receive Date: 20120504
  Receipt Date: 20120425
  Transmission Date: 20120825
  Serious: Yes (Other)
  Sender: FDA-Public Use
  Company Number: PHHY2012CH017124

PATIENT
  Age: 79 Year
  Sex: Female

DRUGS (2)
  1. RASILAMLO [Suspect]
     Indication: ESSENTIAL HYPERTENSION
     Dosage: UNK
     Route: 048
     Dates: start: 20110901, end: 20110930
  2. HYGROTON [Suspect]
     Dosage: 12.5 MG, DAILY
     Route: 048

REACTIONS (6)
  - RASH [None]
  - SUICIDAL IDEATION [None]
  - TOXIC SKIN ERUPTION [None]
  - DRUG ERUPTION [None]
  - PAIN IN EXTREMITY [None]
  - DERMATOSIS [None]
